FAERS Safety Report 12446816 (Version 1)
Quarter: 2016Q2

REPORT INFORMATION
  Report Type: Report from Study
  Country: CA (occurrence: CA)
  Receive Date: 20160608
  Receipt Date: 20160608
  Transmission Date: 20160815
  Serious: Yes (Other)
  Sender: FDA-Public Use
  Company Number: CA-AMGEN-CANSL2016066775

PATIENT
  Sex: Male

DRUGS (11)
  1. SOTALOL. [Concomitant]
     Active Substance: SOTALOL
     Indication: CARDIAC OPERATION
     Dosage: 80 MG, 4 DOSES A DAY
  2. METFORMIN [Concomitant]
     Active Substance: METFORMIN HYDROCHLORIDE
     Indication: DIABETES MELLITUS
     Dosage: 500 MG, 4 TIMES A DAY
  3. VALSARTAN. [Concomitant]
     Active Substance: VALSARTAN
     Dosage: 30 MG, QD
  4. SPIRONOLACTONE. [Concomitant]
     Active Substance: SPIRONOLACTONE
     Dosage: 25 MG, QD
  5. INVOKANA [Concomitant]
     Active Substance: CANAGLIFLOZIN
     Dosage: UNK
  6. APO AMOXI CLAV [Concomitant]
     Dosage: 125 MG, BID
  7. MOMETASONE FUROATE. [Concomitant]
     Active Substance: MOMETASONE FUROATE
     Dosage: UNK
     Route: 045
  8. COQ10 [Concomitant]
     Active Substance: UBIDECARENONE
     Dosage: 200 MG, UNK
  9. EZETIMIBE. [Concomitant]
     Active Substance: EZETIMIBE
     Dosage: 10 MG, QD
  10. REPATHA [Suspect]
     Active Substance: EVOLOCUMAB
     Indication: PRODUCT USED FOR UNKNOWN INDICATION
     Dosage: 140 MG/1.0 ML,  UNK
     Route: 065
     Dates: start: 20160513, end: 20160513
  11. ASPIRIN. [Concomitant]
     Active Substance: ASPIRIN
     Dosage: 81 MG, QD

REACTIONS (9)
  - Chills [Recovered/Resolved]
  - Influenza like illness [Recovered/Resolved]
  - Back pain [Unknown]
  - Dyspnoea [Recovered/Resolved]
  - Rhinorrhoea [Unknown]
  - Pneumonia [Unknown]
  - Nasal congestion [Unknown]
  - Headache [Unknown]
  - Nasopharyngitis [Recovered/Resolved]
